FAERS Safety Report 10142805 (Version 1)
Quarter: 2014Q2

REPORT INFORMATION
  Report Type: Spontaneous
  Country: FR (occurrence: FR)
  Receive Date: 20140430
  Receipt Date: 20140430
  Transmission Date: 20141212
  Serious: Yes (Hospitalization)
  Sender: FDA-Public Use
  Company Number: FR-ASTRAZENECA-2014SE28302

PATIENT
  Age: 23679 Day
  Sex: Female

DRUGS (7)
  1. BRILIQUE [Suspect]
     Indication: ARTERIAL THROMBOSIS
     Route: 048
     Dates: start: 20140208, end: 20140217
  2. LOVENOX [Suspect]
     Indication: ARTERIAL THROMBOSIS
     Route: 058
     Dates: start: 20140208, end: 20140217
  3. ISOPTINE [Concomitant]
  4. COVERSYL [Concomitant]
  5. INIPOMP [Concomitant]
  6. SKENAN [Concomitant]
     Dates: start: 20140212
  7. SOLUPRED [Concomitant]
     Dates: start: 20140212

REACTIONS (5)
  - Pain [Unknown]
  - Pallor [Unknown]
  - Haemoglobin decreased [Unknown]
  - Oedema peripheral [Recovered/Resolved]
  - Muscle haemorrhage [Not Recovered/Not Resolved]
